FAERS Safety Report 23331614 (Version 2)
Quarter: 2023Q4

REPORT INFORMATION
  Report Type: Spontaneous
  Country: CO (occurrence: CO)
  Receive Date: 20231222
  Receipt Date: 20231229
  Transmission Date: 20240109
  Serious: No
  Sender: FDA-Public Use
  Company Number: CO-PFIZER INC-PV202300197634

PATIENT
  Age: 13 Year
  Sex: Male

DRUGS (4)
  1. GENOTROPIN [Suspect]
     Active Substance: SOMATROPIN
     Dosage: 1.8 MG, DAILY
     Route: 058
     Dates: start: 20190801
  2. GENOTROPIN [Suspect]
     Active Substance: SOMATROPIN
     Dosage: 1 MG
     Route: 058
  3. EVALAX [Concomitant]
  4. RISPERDAL [Concomitant]
     Active Substance: RISPERIDONE

REACTIONS (5)
  - Drug dose omission by device [Unknown]
  - Device failure [Unknown]
  - Device leakage [Unknown]
  - Device occlusion [Unknown]
  - Needle issue [Unknown]

NARRATIVE: CASE EVENT DATE: 20231202
